FAERS Safety Report 5756144-5 (Version None)
Quarter: 2008Q2

REPORT INFORMATION
  Report Type: 
  Country: None (occurrence: None)
  Receive Date: 20080602
  Receipt Date: 20080521
  Transmission Date: 20081010
  Serious: Yes (Other)
  Sender: FDA-Public Use
  Company Number: US-PFIZER INC-2008041203

PATIENT
  Sex: Female
  Weight: 86 kg

DRUGS (2)
  1. CHANTIX [Suspect]
     Indication: SMOKING CESSATION THERAPY
     Route: 048
     Dates: start: 20080201, end: 20080201
  2. LEXAPRO [Concomitant]

REACTIONS (5)
  - CYST [None]
  - PRURITUS [None]
  - SCAB [None]
  - SKIN LESION [None]
  - URTICARIA [None]
